FAERS Safety Report 21042869 (Version 1)
Quarter: 2022Q3

REPORT INFORMATION
  Report Type: Spontaneous
  Country: US (occurrence: None)
  Receive Date: 20220701
  Receipt Date: 20220701
  Transmission Date: 20221026
  Serious: No
  Sender: FDA-Public Use
  Company Number: None

PATIENT
  Age: 70 Year
  Sex: Female
  Weight: 61.23 kg

DRUGS (11)
  1. EXKIVITY [Suspect]
     Active Substance: MOBOCERTINIB
     Indication: Lung neoplasm malignant
     Dosage: FREQUENCY : DAILY;?
     Route: 048
  2. AMLODIPINE [Concomitant]
  3. CALCIUM CARB-CHOLECALCIFEROL [Concomitant]
  4. FOLIC ACID [Concomitant]
  5. IMODIUM [Concomitant]
     Active Substance: LOPERAMIDE HYDROCHLORIDE
  6. KETOCONAZOLE [Concomitant]
  7. LOMOTIL [Concomitant]
  8. OMEPRAZOLE [Concomitant]
  9. THERA M, VASCEPA [Concomitant]
  10. VITAMIN B COMPLEX [Concomitant]
  11. VITAMIN D [Concomitant]

REACTIONS (1)
  - Diarrhoea [None]
